FAERS Safety Report 7287356-X (Version None)
Quarter: 2011Q1

REPORT INFORMATION
  Report Type: 
  Country: None (occurrence: None)
  Receive Date: 20110211
  Receipt Date: 20110201
  Transmission Date: 20110831
  Serious: Yes (Hospitalization, Other)
  Sender: FDA-Public Use
  Company Number: US-JNJFOC-20110201702

PATIENT
  Age: 39 Year
  Sex: Female

DRUGS (5)
  1. MITOMYCIN [Suspect]
     Indication: NEUROENDOCRINE TUMOUR
     Route: 042
  2. CISPLATIN [Suspect]
     Indication: NEUROENDOCRINE TUMOUR
     Route: 042
  3. DOXORUBICIN HCL [Suspect]
     Indication: NEUROENDOCRINE TUMOUR
     Route: 042
  4. LEVOFLOXACIN [Concomitant]
     Indication: ANTIBIOTIC PROPHYLAXIS
     Route: 065
  5. METRONIDAZOLE [Concomitant]
     Indication: ANTIBIOTIC PROPHYLAXIS
     Route: 065

REACTIONS (4)
  - SEPSIS [None]
  - TRANSAMINASES INCREASED [None]
  - BLOOD ALKALINE PHOSPHATASE INCREASED [None]
  - LEUKOCYTOSIS [None]
